FAERS Safety Report 13021184 (Version 2)
Quarter: 2016Q4

REPORT INFORMATION
  Report Type: Spontaneous
  Country: BR (occurrence: BR)
  Receive Date: 20161213
  Receipt Date: 20161227
  Transmission Date: 20170207
  Serious: Yes (Life-Threatening, Other)
  Sender: FDA-Public Use
  Company Number: BR-ASTRAZENECA-2016SF29399

PATIENT
  Sex: Male
  Weight: 96 kg

DRUGS (3)
  1. FORXIGA [Suspect]
     Active Substance: DAPAGLIFLOZIN
     Indication: DIABETES MELLITUS
     Dosage: TWO TIMES A DAY
     Route: 048
     Dates: start: 201606
  2. UNKNOWN [Concomitant]
     Active Substance: UNSPECIFIED INGREDIENT
     Indication: BLOOD TRIGLYCERIDES ABNORMAL
  3. INSULIN [Concomitant]
     Active Substance: INSULIN NOS
     Dosage: 60U IN THE MORNING AND 50U AT NIGHT

REACTIONS (2)
  - Hyperglycaemia [Recovering/Resolving]
  - Off label use [Not Recovered/Not Resolved]
